FAERS Safety Report 8234428-9 (Version None)
Quarter: 2012Q1

REPORT INFORMATION
  Report Type: 
  Country: None (occurrence: None)
  Receive Date: 20120326
  Receipt Date: 20120319
  Transmission Date: 20120608
  Serious: Yes (Hospitalization)
  Sender: FDA-Public Use
  Company Number: US-ROCHE-1051612

PATIENT
  Sex: Female

DRUGS (4)
  1. PACLITAXEL [Suspect]
     Indication: MALIGNANT PERITONEAL NEOPLASM
     Dosage: 135 MG/M2 OVER 3 HOURS ON DAY 1, 60 MG/M2 ON DAY 8
     Route: 042
  2. CISPLATIN [Suspect]
     Indication: MALIGNANT PERITONEAL NEOPLASM
     Dosage: 75 MG/M2 ON DAY 2
     Route: 033
  3. AVASTIN [Suspect]
     Indication: MALIGNANT PERITONEAL NEOPLASM
     Dosage: OVER 30-90 MIN ON DAY 1, BEGINNING WITH CYCLE 2
     Route: 042
  4. PACLITAXEL [Suspect]
     Dosage: 60 MG/M2 ON DAY 8
     Route: 033

REACTIONS (1)
  - SMALL INTESTINAL OBSTRUCTION [None]
